FAERS Safety Report 10302272 (Version 1)
Quarter: 2014Q3

REPORT INFORMATION
  Report Type: Spontaneous
  Country: US (occurrence: None)
  Receive Date: 20140709
  Receipt Date: 20140709
  Transmission Date: 20150326
  Serious: Yes (Hospitalization)
  Sender: FDA-Public Use
  Company Number: TIR--03655

PATIENT
  Age: 79 Year
  Sex: Female
  Weight: 53.52 kg

DRUGS (5)
  1. LOSARTAN (LOSARTAN POTASSIUM) [Concomitant]
  2. ZOCOR [Concomitant]
     Active Substance: SIMVASTATIN
  3. COREG [Concomitant]
     Active Substance: CARVEDILOL
  4. TIROSINT [Suspect]
     Active Substance: LEVOTHYROXINE SODIUM
     Indication: HYPOTHYROIDISM
     Route: 048
     Dates: start: 2011
  5. BABY ASPIRIN [Concomitant]
     Active Substance: ASPIRIN

REACTIONS (3)
  - Weight decreased [None]
  - Coronary artery occlusion [None]
  - Myocardial infarction [None]

NARRATIVE: CASE EVENT DATE: 201303
